FAERS Safety Report 7537509-8 (Version None)
Quarter: 2011Q2

REPORT INFORMATION
  Report Type: 
  Country: None (occurrence: None)
  Receive Date: 20110609
  Receipt Date: 20070330
  Transmission Date: 20111010
  Serious: Yes (Death)
  Sender: FDA-Public Use
  Company Number: PHFR2007GB00847

PATIENT
  Sex: Male

DRUGS (3)
  1. SINEMET [Concomitant]
     Indication: PARKINSON'S DISEASE
     Dosage: 1.5 DF, TID
     Dates: start: 20070117
  2. CLOZAPINE [Suspect]
     Indication: PARKINSON'S DISEASE
     Dosage: 25 MG, DAILY
     Route: 048
     Dates: start: 20061020
  3. CLONAZEPAM [Concomitant]
     Indication: DEMENTIA ALZHEIMER'S TYPE
     Dosage: 500 UG, DAILY
     Route: 049
     Dates: start: 20070117

REACTIONS (1)
  - PNEUMONIA [None]
